FAERS Safety Report 6129868-8 (Version None)
Quarter: 2009Q1

REPORT INFORMATION
  Report Type: 
  Country: None (occurrence: None)
  Receive Date: 20090323
  Receipt Date: 20090323
  Transmission Date: 20090719
  Serious: No
  Sender: FDA-Public Use
  Company Number: None

PATIENT

DRUGS (1)
  1. VISINE EYE DROPS [Suspect]
     Dates: start: 20081214, end: 20081216

REACTIONS (3)
  - DRUG HYPERSENSITIVITY [None]
  - MEDICAL DEVICE COMPLICATION [None]
  - VISION BLURRED [None]
